FAERS Safety Report 9776007 (Version 2)
Quarter: 2013Q4

REPORT INFORMATION
  Report Type: Spontaneous
  Country: US (occurrence: US)
  Receive Date: 20131220
  Receipt Date: 20131220
  Transmission Date: 20140711
  Serious: Yes (Other)
  Sender: FDA-Public Use
  Company Number: -SAAVPROD-THYR-1000947

PATIENT
  Age: 43 Year
  Sex: Female
  Weight: 83.08 kg

DRUGS (4)
  1. THYROTROPIN ALFA [Suspect]
     Indication: THERAPEUTIC PROCEDURE
     Dosage: 1.1 MG, ONCE IN BUTTOCK
     Route: 030
     Dates: start: 20130506, end: 20130506
  2. LEVOTHYROXINE [Concomitant]
     Indication: PRODUCT USED FOR UNKNOWN INDICATION
     Dosage: UNK
     Route: 065
  3. COLECALCIFEROL [Concomitant]
     Indication: PRODUCT USED FOR UNKNOWN INDICATION
     Dosage: UNK
     Route: 065
  4. IRON [Concomitant]
     Indication: PRODUCT USED FOR UNKNOWN INDICATION
     Dosage: UNK
     Route: 065

REACTIONS (3)
  - Headache [Recovered/Resolved]
  - Vision blurred [Recovered/Resolved]
  - Fall [Recovered/Resolved]
